FAERS Safety Report 16874658 (Version 2)
Quarter: 2019Q4

REPORT INFORMATION
  Report Type: Spontaneous
  Country: US (occurrence: US)
  Receive Date: 20191001
  Receipt Date: 20191115
  Transmission Date: 20200122
  Serious: Yes (Hospitalization, Other)
  Sender: FDA-Public Use
  Company Number: US-ENDO PHARMACEUTICALS INC-2019-106632

PATIENT
  Age: 45 Year
  Sex: Male
  Weight: 81.63 kg

DRUGS (4)
  1. XIAFLEX [Suspect]
     Active Substance: COLLAGENASE CLOSTRIDIUM HISTOLYTICUM
     Dosage: UNKNOWN, ONCE EVERY 6WKS (CYCLE 1, INJECTION 1 AND 2)
     Route: 026
     Dates: start: 2019
  2. XIAFLEX [Suspect]
     Active Substance: COLLAGENASE CLOSTRIDIUM HISTOLYTICUM
     Indication: PEYRONIE^S DISEASE
     Dosage: UNKNOWN, ONCE EVERY 6WKS (CYCLE 3, INJECTION 1 AND 2)
     Route: 026
     Dates: start: 20190913, end: 20190915
  3. XIAFLEX [Suspect]
     Active Substance: COLLAGENASE CLOSTRIDIUM HISTOLYTICUM
     Dosage: UNKNOWN, ONCE EVERY 6WKS (CYCLE 2, INJECTION 2)
     Route: 026
     Dates: start: 20190829
  4. XIAFLEX [Suspect]
     Active Substance: COLLAGENASE CLOSTRIDIUM HISTOLYTICUM
     Dosage: UNKNOWN, ONCE EVERY 6WKS (CYCLE 2, INJECTION 1)
     Route: 026
     Dates: start: 20190826

REACTIONS (5)
  - Contusion [Recovered/Resolved]
  - Swelling [Recovered/Resolved]
  - Fracture of penis [Recovered/Resolved]
  - Pain [Recovered/Resolved]
  - Corpora cavernosa surgery [Recovered/Resolved]

NARRATIVE: CASE EVENT DATE: 2019
